FAERS Safety Report 9008823 (Version 1)
Quarter: 2013Q1

REPORT INFORMATION
  Report Type: Spontaneous
  Country: US (occurrence: US)
  Receive Date: 20130111
  Receipt Date: 20130111
  Transmission Date: 20140127
  Serious: Yes (Other)
  Sender: FDA-Public Use
  Company Number: US-009507513-1301USA004192

PATIENT
  Age: 22 Year
  Sex: Female

DRUGS (6)
  1. SINGULAIR [Suspect]
     Indication: PRODUCT USED FOR UNKNOWN INDICATION
  2. CIPRO [Suspect]
  3. CARAFATE [Suspect]
  4. DEXILANT [Suspect]
  5. REBIF [Suspect]
     Dosage: 44 MICROGRAM, 3 IN ONE WEEK
     Route: 058
  6. NEXIUM [Suspect]
     Route: 048

REACTIONS (2)
  - Liver injury [Unknown]
  - Amenorrhoea [Unknown]
